FAERS Safety Report 7499466-2 (Version None)
Quarter: 2011Q2

REPORT INFORMATION
  Report Type: 
  Country: None (occurrence: None)
  Receive Date: 20110524
  Receipt Date: 20110512
  Transmission Date: 20111010
  Serious: Yes (Other)
  Sender: FDA-Public Use
  Company Number: PHHY2011US40937

PATIENT
  Age: 39 Year
  Sex: Female

DRUGS (2)
  1. THYROID HORMONES [Concomitant]
  2. RECLAST [Suspect]
     Indication: OSTEOPOROSIS
     Dosage: 5 MG ONCE YEARLY
     Route: 042
     Dates: start: 20100901

REACTIONS (3)
  - WRIST FRACTURE [None]
  - FALL [None]
  - IMPAIRED HEALING [None]
